FAERS Safety Report 12136640 (Version 3)
Quarter: 2016Q1

REPORT INFORMATION
  Report Type: Other
  Country: RU (occurrence: RU)
  Receive Date: 20160302
  Receipt Date: 20160322
  Transmission Date: 20160526
  Serious: Yes (Other)
  Sender: FDA-Public Use
  Company Number: RU-EMD SERONO-8069864

PATIENT
  Age: 16 Year
  Sex: Male

DRUGS (1)
  1. REBIF [Suspect]
     Active Substance: INTERFERON BETA-1A
     Indication: MULTIPLE SCLEROSIS
     Dosage: IN MAY OR APR 2015
     Route: 058

REACTIONS (1)
  - Optic atrophy [Unknown]
